FAERS Safety Report 10013724 (Version 3)
Quarter: 2014Q2

REPORT INFORMATION
  Report Type: Spontaneous
  Country: US (occurrence: US)
  Receive Date: 20140316
  Receipt Date: 20140624
  Transmission Date: 20141212
  Serious: Yes (Other)
  Sender: FDA-Public Use
  Company Number: US-BAYER-2014-038697

PATIENT
  Age: 23 Year
  Sex: Female
  Weight: 68.03 kg

DRUGS (5)
  1. MIRENA [Suspect]
     Indication: CONTRACEPTION
     Dosage: 20 MCG/24HR, CONT
     Route: 015
     Dates: start: 20110209, end: 20110915
  2. IBUPROFEN [Concomitant]
  3. MOTRIN [Concomitant]
  4. VALIUM [Concomitant]
  5. CYTOTEC [Concomitant]

REACTIONS (8)
  - Uterine perforation [None]
  - Injury [None]
  - Pain [None]
  - Emotional distress [None]
  - Depression [None]
  - Anxiety [None]
  - Device issue [None]
  - Psychological trauma [None]
